FAERS Safety Report 23843741 (Version 1)
Quarter: 2024Q2

REPORT INFORMATION
  Report Type: Spontaneous
  Country: US (occurrence: None)
  Receive Date: 20240510
  Receipt Date: 20240510
  Transmission Date: 20240716
  Serious: Yes (Hospitalization)
  Sender: FDA-Public Use
  Company Number: None

PATIENT
  Sex: Male
  Weight: 94.5 kg

DRUGS (1)
  1. CABOTEGRAVIR [Suspect]
     Active Substance: CABOTEGRAVIR
     Indication: Exposure to communicable disease
     Dosage: OTHER FREQUENCY : 2 MONTHS;?
     Route: 030

REACTIONS (2)
  - Pulmonary embolism [None]
  - Embolism venous [None]
